FAERS Safety Report 12552577 (Version 4)
Quarter: 2016Q3

REPORT INFORMATION
  Report Type: Spontaneous
  Country: FR (occurrence: FR)
  Receive Date: 20160713
  Receipt Date: 20160907
  Transmission Date: 20161109
  Serious: Yes (Other)
  Sender: FDA-Public Use
  Company Number: FR-NOVOPROD-499198

PATIENT
  Sex: Male

DRUGS (1)
  1. NORDITROPIN [Suspect]
     Active Substance: SOMATROPIN
     Indication: GROWTH HORMONE DEFICIENCY
     Dosage: 0.5 MG, UNK
     Route: 058

REACTIONS (4)
  - Growth accelerated [Unknown]
  - Overdose [Recovered/Resolved]
  - Drug dispensing error [Unknown]
  - Drug administered in wrong device [Recovered/Resolved]

NARRATIVE: CASE EVENT DATE: 201512
